FAERS Safety Report 22629740 (Version 1)
Quarter: 2023Q2

REPORT INFORMATION
  Report Type: Spontaneous
  Country: DE (occurrence: DE)
  Receive Date: 20230622
  Receipt Date: 20230622
  Transmission Date: 20230722
  Serious: Yes (Other)
  Sender: FDA-Public Use
  Company Number: DE-BAXTER-2023BAX023506

PATIENT

DRUGS (15)
  1. BORTEZOMIB [Suspect]
     Active Substance: BORTEZOMIB
     Indication: Plasma cell myeloma refractory
     Dosage: UNK,THIRD LINE TREATMENT
     Route: 065
     Dates: start: 20220801, end: 20221101
  2. LENALIDOMIDE [Suspect]
     Active Substance: LENALIDOMIDE
     Indication: Plasma cell myeloma refractory
     Dosage: UNK, FIRST LINE TREATMENT
     Route: 065
     Dates: start: 20200110, end: 20220501
  3. SELINEXOR [Suspect]
     Active Substance: SELINEXOR
     Indication: Plasma cell myeloma refractory
     Dosage: UNK,FIFTH LINE TREATMENT
     Route: 065
     Dates: start: 20230314, end: 20230414
  4. ISATUXIMAB [Suspect]
     Active Substance: ISATUXIMAB
     Indication: Plasma cell myeloma refractory
     Dosage: UNK,SECOND LINE TREATMENT
     Route: 065
     Dates: start: 20220501, end: 20220801
  5. POMALIDOMIDE [Suspect]
     Active Substance: POMALIDOMIDE
     Indication: Plasma cell myeloma refractory
     Dosage: UNK,SECOND LINE TREATMENT
     Route: 065
     Dates: start: 20220501, end: 20220801
  6. POMALIDOMIDE [Suspect]
     Active Substance: POMALIDOMIDE
     Dosage: UNK, SIXTH LINE TREATMENT (MOST RECENT)
     Route: 065
     Dates: start: 20230501, end: 20230601
  7. CARFILZOMIB [Suspect]
     Active Substance: CARFILZOMIB
     Indication: Plasma cell myeloma refractory
     Dosage: UNK, SIXTH LINE TREATMENT (MOST RECENT)
     Route: 065
     Dates: start: 20230501, end: 20230601
  8. CARFILZOMIB [Suspect]
     Active Substance: CARFILZOMIB
     Dosage: UNK, FIRST LINE TREATMENT
     Route: 065
     Dates: start: 20200110, end: 20220501
  9. CYCLOPHOSPHAMIDE [Suspect]
     Active Substance: CYCLOPHOSPHAMIDE
     Indication: Plasma cell myeloma refractory
     Dosage: UNK (FIRST LINE TREATMENT)
     Route: 065
     Dates: start: 20200110, end: 20220501
  10. DEXAMETHASONE [Suspect]
     Active Substance: DEXAMETHASONE
     Indication: Plasma cell myeloma refractory
     Dosage: UNK, SECOND LINE TREATMENT
     Route: 065
     Dates: start: 20220501, end: 20220801
  11. DEXAMETHASONE [Suspect]
     Active Substance: DEXAMETHASONE
     Dosage: UNK, SIXTH LINE TREATMENT
     Route: 065
     Dates: start: 20230501, end: 20230601
  12. DEXAMETHASONE [Suspect]
     Active Substance: DEXAMETHASONE
     Dosage: UNK,FIRST LINE TREATMENT
     Route: 065
     Dates: start: 20200110, end: 20220501
  13. DEXAMETHASONE [Suspect]
     Active Substance: DEXAMETHASONE
     Dosage: UNK,THIRD LINE TREATMENT
     Route: 065
     Dates: start: 20220801, end: 20221101
  14. MELPHALAN [Suspect]
     Active Substance: MELPHALAN
     Indication: Plasma cell myeloma refractory
     Dosage: UNK, FIRST LINE TREATMENT
     Route: 065
     Dates: start: 20200110, end: 20220501
  15. DOXORUBICIN [Suspect]
     Active Substance: DOXORUBICIN
     Indication: Plasma cell myeloma refractory
     Dosage: UNK, THIRD LINE TREATMENT
     Route: 065
     Dates: start: 20220801, end: 20221101

REACTIONS (2)
  - Plasma cell myeloma [Unknown]
  - Off label use [Unknown]
